FAERS Safety Report 6284253-3 (Version None)
Quarter: 2009Q3

REPORT INFORMATION
  Report Type: 
  Country: None (occurrence: None)
  Receive Date: 20090727
  Receipt Date: 20090721
  Transmission Date: 20100115
  Serious: Yes (Other)
  Sender: FDA-Public Use
  Company Number: US-BAYER-200927407NA

PATIENT
  Age: 66 Year
  Sex: Male

DRUGS (6)
  1. LEVITRA [Suspect]
     Indication: ERECTILE DYSFUNCTION
     Dosage: UNIT DOSE: 20 MG
     Route: 048
     Dates: start: 20050101
  2. PRILOSEC [Concomitant]
     Dosage: TOTAL DAILY DOSE: 20 MG
  3. CELEBREX [Concomitant]
     Dosage: TOTAL DAILY DOSE: 200 MG
  4. MOTRIN [Concomitant]
     Dosage: TOTAL DAILY DOSE: 800 MG
  5. ACETAMINOPHEN [Concomitant]
     Dosage: TOTAL DAILY DOSE: 1 G
  6. IMODIUM [Concomitant]
     Indication: COLITIS
     Dosage: TOTAL DAILY DOSE: 2 MG

REACTIONS (9)
  - BREATH SOUNDS ABNORMAL [None]
  - COUGH [None]
  - DECREASED APPETITE [None]
  - DYSPNOEA [None]
  - FEELING ABNORMAL [None]
  - MOUNTAIN SICKNESS ACUTE [None]
  - NAUSEA [None]
  - PULMONARY HYPERTENSION [None]
  - PULMONARY OEDEMA [None]
